FAERS Safety Report 21053664 (Version 1)
Quarter: 2022Q3

REPORT INFORMATION
  Report Type: Report from Study
  Country: US (occurrence: US)
  Receive Date: 20220707
  Receipt Date: 20220707
  Transmission Date: 20221027
  Serious: Yes (Death, Hospitalization, Other)
  Sender: FDA-Public Use
  Company Number: US-NOVARTISPH-NVSC2022US154308

PATIENT
  Age: 73 Year
  Sex: Male
  Weight: 71.3 kg

DRUGS (3)
  1. LUTATHERA [Suspect]
     Active Substance: LUTETIUM OXODOTREOTIDE LU-177
     Indication: Phaeochromocytoma
     Dosage: 198.9 MCI EVERY 8 WEEKS X 4 CYSLES
     Route: 042
     Dates: start: 20180912, end: 20190108
  2. ELIQUIS [Concomitant]
     Active Substance: APIXABAN
     Indication: Product used for unknown indication
     Dosage: UNK
     Route: 065
  3. DILTIAZEM [Concomitant]
     Active Substance: DILTIAZEM
     Indication: Product used for unknown indication
     Dosage: UNK
     Route: 065

REACTIONS (32)
  - Respiratory failure [Fatal]
  - Pleural effusion [Recovering/Resolving]
  - Bronchial secretion retention [Unknown]
  - Pneumonia [Recovering/Resolving]
  - Atrial fibrillation [Unknown]
  - Small intestinal obstruction [Unknown]
  - Metastases to peritoneum [Unknown]
  - Metastases to stomach [Unknown]
  - Metastases to abdominal wall [Unknown]
  - Hip fracture [Unknown]
  - Pericardial effusion [Unknown]
  - Corneal opacity [Unknown]
  - Hypoxia [Unknown]
  - Pulmonary vasculitis [Unknown]
  - Malaise [Unknown]
  - Cough [Unknown]
  - Fatigue [Unknown]
  - Productive cough [Unknown]
  - Cardiomegaly [Unknown]
  - Lung disorder [Unknown]
  - Dilatation atrial [Unknown]
  - Cardiac disorder [Unknown]
  - Vomiting [Unknown]
  - Abdominal pain [Unknown]
  - Back pain [Unknown]
  - Benign lymph node neoplasm [Unknown]
  - Fibrosis [Unknown]
  - Dyspnoea [Unknown]
  - Anaemia [Unknown]
  - Oxygen consumption increased [Unknown]
  - Confusional state [Unknown]
  - Product use in unapproved indication [Unknown]

NARRATIVE: CASE EVENT DATE: 20180912
